FAERS Safety Report 7727742-4 (Version None)
Quarter: 2011Q3

REPORT INFORMATION
  Report Type: 
  Country: None (occurrence: None)
  Receive Date: 20110902
  Receipt Date: 20110831
  Transmission Date: 20111222
  Serious: Yes (Hospitalization, Disabling)
  Sender: FDA-Public Use
  Company Number: US-MERCK-1108USA00182

PATIENT
  Age: 69 Year
  Sex: Female

DRUGS (1)
  1. FOSAMAX [Suspect]
     Indication: ARTHRITIS
     Route: 048
     Dates: start: 19960101, end: 20100301

REACTIONS (14)
  - FEMUR FRACTURE [None]
  - CARDIAC FAILURE [None]
  - ADVERSE EVENT [None]
  - LOW TURNOVER OSTEOPATHY [None]
  - OSTEOPOROSIS [None]
  - CERVICAL VERTEBRAL FRACTURE [None]
  - STRESS FRACTURE [None]
  - OFF LABEL USE [None]
  - FALL [None]
  - PNEUMONIA [None]
  - UTERINE DISORDER [None]
  - BLOOD CHOLESTEROL INCREASED [None]
  - ARTHROPATHY [None]
  - RHEUMATOID ARTHRITIS [None]
